FAERS Safety Report 8340603-5 (Version None)
Quarter: 2012Q2

REPORT INFORMATION
  Report Type: 
  Country: None (occurrence: None)
  Receive Date: 20120507
  Receipt Date: 20120504
  Transmission Date: 20120825
  Serious: Yes (Life-Threatening, Hospitalization, Disabling, Other)
  Sender: FDA-Public Use
  Company Number: GB-GILEAD-2012-0054578

PATIENT
  Age: 59 Year
  Sex: Female

DRUGS (8)
  1. ISENTRESS [Suspect]
     Indication: HIV TEST
     Dates: start: 20120101, end: 20120326
  2. RIFAMPICIN [Concomitant]
  3. TRUVADA [Suspect]
     Indication: HIV INFECTION
     Dates: start: 20111201, end: 20120326
  4. VALGANCICLOVIR [Concomitant]
  5. MOXIFLOXACIN [Concomitant]
  6. EFAVIRENZ [Concomitant]
     Dates: start: 20111201
  7. MIRTAZAPINE [Concomitant]
  8. OMEPRAZOLE [Concomitant]

REACTIONS (2)
  - HAEMOGLOBIN DECREASED [None]
  - GASTROINTESTINAL HAEMORRHAGE [None]
